FAERS Safety Report 14908374 (Version 1)
Quarter: 2018Q2

REPORT INFORMATION
  Report Type: Spontaneous
  Country: BE (occurrence: BE)
  Receive Date: 20180517
  Receipt Date: 20180517
  Transmission Date: 20180711
  Serious: Yes (Hospitalization)
  Sender: FDA-Public Use
  Company Number: BE-CLINIGEN GROUP PLC/ CLINIGEN HEALTHCARE LTD-BE-CLGN-18-0012156

PATIENT
  Age: 71 Year
  Sex: Female
  Weight: 63 kg

DRUGS (14)
  1. DOXORUBICIN HYDROCHLORIDE. [Suspect]
     Active Substance: DOXORUBICIN HYDROCHLORIDE
     Indication: SOFT TISSUE SARCOMA
     Route: 042
     Dates: start: 20160519
  2. ASAFLOW [Concomitant]
     Active Substance: ASPIRIN
     Indication: PRODUCT USED FOR UNKNOWN INDICATION
     Dates: start: 2007
  3. ALDACTAZIDE [Concomitant]
     Active Substance: HYDROCHLOROTHIAZIDE\SPIRONOLACTONE
     Indication: PRODUCT USED FOR UNKNOWN INDICATION
  4. BISOPROLOL [Concomitant]
     Active Substance: BISOPROLOL
     Indication: PRODUCT USED FOR UNKNOWN INDICATION
     Dates: start: 20160404
  5. PANTOMED [Concomitant]
     Indication: PRODUCT USED FOR UNKNOWN INDICATION
     Dates: start: 20160523
  6. ALDACTONE [Concomitant]
     Active Substance: SPIRONOLACTONE
     Indication: PRODUCT USED FOR UNKNOWN INDICATION
     Dates: start: 20160603
  7. DEXRAZOXANE HCL [Suspect]
     Active Substance: DEXRAZOXANE HYDROCHLORIDE
     Indication: SOFT TISSUE SARCOMA
     Route: 042
     Dates: start: 20160519
  8. ALDACTAZINE [Suspect]
     Active Substance: ALTHIAZIDE\SPIRONOLACTONE
     Indication: HYPERTENSION
     Route: 048
     Dates: start: 20160404, end: 20160602
  9. BLINDED STUDY MEDICATION [Suspect]
     Active Substance: INVESTIGATIONAL PRODUCT
     Indication: SOFT TISSUE SARCOMA
     Route: 042
     Dates: start: 20160519
  10. CRESTOR [Concomitant]
     Active Substance: ROSUVASTATIN CALCIUM
     Indication: PRODUCT USED FOR UNKNOWN INDICATION
     Dates: start: 2007
  11. CALCIUM [Concomitant]
     Active Substance: CALCIUM
     Indication: PRODUCT USED FOR UNKNOWN INDICATION
     Dates: start: 20160602
  12. AMLOR [Concomitant]
     Active Substance: AMLODIPINE BESYLATE
     Indication: PRODUCT USED FOR UNKNOWN INDICATION
     Dates: start: 2007
  13. SERENASE [Concomitant]
     Indication: PRODUCT USED FOR UNKNOWN INDICATION
     Dates: start: 20160602
  14. COLECALCIFEROL [Concomitant]
     Active Substance: CHOLECALCIFEROL
     Indication: PRODUCT USED FOR UNKNOWN INDICATION
     Dates: start: 20160602

REACTIONS (2)
  - Off label use [Unknown]
  - Hypokalaemia [Recovered/Resolved]

NARRATIVE: CASE EVENT DATE: 20160602
